FAERS Safety Report 7572372-0 (Version None)
Quarter: 2011Q2

REPORT INFORMATION
  Report Type: 
  Country: None (occurrence: None)
  Receive Date: 20110624
  Receipt Date: 20110622
  Transmission Date: 20111010
  Serious: Yes (Death, Hospitalization)
  Sender: FDA-Public Use
  Company Number: PHHY2011TW55279

PATIENT
  Age: 90 Year
  Sex: Female

DRUGS (1)
  1. ZOLEDRONIC ACID [Suspect]
     Indication: OSTEOPOROSIS POSTMENOPAUSAL
     Dosage: 5 MG/100CC ONCE PER YEAR
     Route: 042
     Dates: start: 20101020

REACTIONS (2)
  - PNEUMONIA [None]
  - NASOPHARYNGITIS [None]
